FAERS Safety Report 7455166-6 (Version None)
Quarter: 2011Q2

REPORT INFORMATION
  Report Type: 
  Country: None (occurrence: None)
  Receive Date: 20110503
  Receipt Date: 20110420
  Transmission Date: 20111010
  Serious: Yes (Other)
  Sender: FDA-Public Use
  Company Number: PHFR2011IE02744

PATIENT
  Sex: Female
  Weight: 81 kg

DRUGS (1)
  1. CLOZARIL [Suspect]
     Indication: SCHIZOPHRENIA
     Dosage: 200 MG MANE, 300 MG NOCTE
     Route: 048
     Dates: start: 20050715

REACTIONS (6)
  - BLOOD SODIUM INCREASED [None]
  - DEPRESSION [None]
  - TOXICITY TO VARIOUS AGENTS [None]
  - PNEUMONIA [None]
  - BIPOLAR DISORDER [None]
  - SEDATION [None]
